FAERS Safety Report 6068560-5 (Version None)
Quarter: 2009Q1

REPORT INFORMATION
  Report Type: 
  Country: None (occurrence: None)
  Receive Date: 20090206
  Receipt Date: 20090130
  Transmission Date: 20090719
  Serious: Yes (Other)
  Sender: FDA-Public Use
  Company Number: US-BIOGENIDEC-2009BI000687

PATIENT
  Age: 59 Year
  Sex: Male

DRUGS (10)
  1. TYSABRI [Suspect]
     Indication: MULTIPLE SCLEROSIS
     Route: 042
     Dates: start: 20080919
  2. CYMBALTA [Concomitant]
     Route: 048
  3. PROZAC [Concomitant]
     Route: 048
  4. EVENING PRIMROSE OIL [Concomitant]
     Route: 048
  5. MULTI-VITAMIN [Concomitant]
     Route: 048
  6. ASCORBIC ACID [Concomitant]
     Route: 048
  7. VITAMIN E [Concomitant]
     Route: 048
  8. ZINC SULFATE [Concomitant]
     Route: 048
  9. AMBIEN [Concomitant]
     Route: 048
  10. ADVIL LIQUI-GELS [Concomitant]
     Route: 048

REACTIONS (1)
  - CHRONIC LYMPHOCYTIC LEUKAEMIA [None]
